FAERS Safety Report 8845148 (Version 2)
Quarter: 2013Q3

REPORT INFORMATION
  Report Type: Spontaneous
  Country: US (occurrence: None)
  Receive Date: 20120928
  Receipt Date: 20130705
  Transmission Date: 20140515
  Serious: Yes (Hospitalization, Other)
  Sender: FDA-Public Use
  Company Number: RB-28410-2011

PATIENT
  Sex: 0

DRUGS (4)
  1. SUBOXONE [Suspect]
     Indication: DRUG DEPENDENCE
     Route: 063
     Dates: start: 2011, end: 2011
  2. BENZODIAZEPINE [Suspect]
     Indication: PRODUCT USED FOR UNKNOWN INDICATION
     Route: 063
     Dates: start: 2011, end: 2011
  3. ZOFRAN [Concomitant]
     Indication: NAUSEA
     Route: 063
     Dates: start: 2011, end: 2011
  4. SUBOXONE 8 MG [Suspect]
     Indication: DRUG DEPENDENCE
     Route: 064
     Dates: start: 20100519

REACTIONS (3)
  - Exposure during breast feeding [None]
  - Drug withdrawal syndrome neonatal [None]
  - Foetal exposure during pregnancy [None]
